FAERS Safety Report 5451442-7 (Version None)
Quarter: 2007Q3

REPORT INFORMATION
  Report Type: 
  Country: None (occurrence: None)
  Receive Date: 20070913
  Receipt Date: 20070912
  Transmission Date: 20080115
  Serious: Yes (Other)
  Sender: FDA-Public Use
  Company Number: D0054530A

PATIENT
  Age: 32 Year
  Sex: Female

DRUGS (5)
  1. VIANI FORTE [Suspect]
     Indication: ASTHMA
     Route: 055
  2. SINGULAIR [Concomitant]
     Indication: ASTHMA
     Route: 055
  3. SULTANOL [Concomitant]
     Indication: ASTHMA
     Route: 055
  4. BERODUAL [Concomitant]
     Indication: ASTHMA
     Route: 055
  5. ALLERGY MEDICATION [Concomitant]
     Route: 048

REACTIONS (7)
  - ASTHMA [None]
  - BREAST PAIN [None]
  - COUGH [None]
  - DYSPNOEA [None]
  - EXERCISE TOLERANCE DECREASED [None]
  - FATIGUE [None]
  - OBSTRUCTION [None]
